FAERS Safety Report 4332514-7 (Version None)
Quarter: 2004Q2

REPORT INFORMATION
  Report Type: 
  Country: None (occurrence: None)
  Receive Date: 20040401
  Receipt Date: 20040330
  Transmission Date: 20050107
  Serious: Yes (Death)
  Sender: FDA-Public Use
  Company Number: 200403581

PATIENT
  Age: 84 Year
  Sex: Female

DRUGS (2)
  1. IBUPROFEN [Suspect]
     Indication: BACK PAIN
     Dosage: 1600MG, ONCE NIGHTLY, PO
     Route: 048
     Dates: start: 20040314, end: 20040319
  2. SOLPADOL (CODEINE/ PARACETAMOL) [Concomitant]

REACTIONS (1)
  - RENAL FAILURE [None]
